FAERS Safety Report 21823693 (Version 4)
Quarter: 2023Q4

REPORT INFORMATION
  Report Type: Spontaneous
  Country: US (occurrence: US)
  Receive Date: 20230105
  Receipt Date: 20231120
  Transmission Date: 20240109
  Serious: Yes (Other)
  Sender: FDA-Public Use
  Company Number: US-PFIZER INC-202300003612

PATIENT
  Age: 83 Year
  Sex: Male
  Weight: 66.213 kg

DRUGS (2)
  1. PAXLOVID [Suspect]
     Active Substance: NIRMATRELVIR\RITONAVIR
     Indication: COVID-19 treatment
     Dosage: UNK
     Dates: start: 20221229
  2. LOVASTATIN [Suspect]
     Active Substance: LOVASTATIN
     Indication: Cardiac disorder
     Dosage: UNK

REACTIONS (4)
  - Parkinson^s disease [Not Recovered/Not Resolved]
  - Diarrhoea [Unknown]
  - Therapeutic response unexpected [Unknown]
  - Hypertension [Unknown]

NARRATIVE: CASE EVENT DATE: 20230102
